FAERS Safety Report 15109909 (Version 1)
Quarter: 2018Q3

REPORT INFORMATION
  Report Type: Spontaneous
  Country: None (occurrence: US)
  Receive Date: 20180705
  Receipt Date: 20180705
  Transmission Date: 20181010
  Serious: No
  Sender: FDA-Public Use
  Company Number: US-PRESTIGE BRANDS -2051447

PATIENT

DRUGS (1)
  1. NIX [Suspect]
     Active Substance: PERMETHRIN

REACTIONS (2)
  - Pruritus generalised [None]
  - Erythema [None]
